FAERS Safety Report 6358085-1 (Version None)
Quarter: 2009Q3

REPORT INFORMATION
  Report Type: 
  Country: None (occurrence: None)
  Receive Date: 20090916
  Receipt Date: 20090908
  Transmission Date: 20100115
  Serious: Yes (Hospitalization)
  Sender: FDA-Public Use
  Company Number: B0593350A

PATIENT

DRUGS (1)
  1. AUGMENTIN [Suspect]
     Indication: RESPIRATORY TRACT INFECTION VIRAL
     Route: 065
     Dates: start: 20090101, end: 20090101

REACTIONS (1)
  - DISBACTERIOSIS [None]
